FAERS Safety Report 5266713-7 (Version None)
Quarter: 2007Q1

REPORT INFORMATION
  Report Type: 
  Country: None (occurrence: None)
  Receive Date: 20070312
  Receipt Date: 20070227
  Transmission Date: 20070707
  Serious: Yes (Disabling)
  Sender: FDA-Public Use
  Company Number: FR-1161713

PATIENT
  Sex: Female

DRUGS (1)
  1. VEXOL [Suspect]
     Dosage: EYE DROPS, SUSPENSION
     Route: 047
     Dates: start: 20000101

REACTIONS (2)
  - BLINDNESS [None]
  - INTRAOCULAR PRESSURE INCREASED [None]
